FAERS Safety Report 10936195 (Version 2)
Quarter: 2015Q2

REPORT INFORMATION
  Report Type: Spontaneous
  Country: US (occurrence: US)
  Receive Date: 20150320
  Receipt Date: 20150421
  Transmission Date: 20150821
  Serious: No
  Sender: FDA-Public Use
  Company Number: US-ASTRAZENECA-2015SE23577

PATIENT
  Sex: Male

DRUGS (1)
  1. SYMBICORT [Suspect]
     Active Substance: BUDESONIDE\FORMOTEROL FUMARATE DIHYDRATE
     Dosage: 80/4.5 MCG 1 PUFF IN AM AND 1 IN PM,TWO TIMES A DAY
     Route: 055

REACTIONS (3)
  - Dyskinesia [Unknown]
  - Tremor [Unknown]
  - Off label use [Unknown]
